FAERS Safety Report 16114146 (Version 2)
Quarter: 2021Q2

REPORT INFORMATION
  Report Type: Spontaneous
  Country: US (occurrence: US)
  Receive Date: 20190325
  Receipt Date: 20210413
  Transmission Date: 20210716
  Serious: No
  Sender: FDA-Public Use
  Company Number: US-ALLERGAN-1854121US

PATIENT
  Sex: Female

DRUGS (4)
  1. OVER?THE?COUNTER EYE DROPS [Concomitant]
     Dosage: (OCCASIONALLY)
     Route: 047
  2. EYELINER [Concomitant]
     Dosage: UNK
     Route: 065
  3. LATISSE [Suspect]
     Active Substance: BIMATOPROST
     Indication: GROWTH OF EYELASHES
     Dosage: 2 GTT, QHS
     Route: 061
     Dates: start: 2018
  4. MASCARA [Concomitant]
     Dosage: UNK
     Route: 065

REACTIONS (3)
  - Madarosis [Unknown]
  - Drug ineffective [Unknown]
  - Blepharal pigmentation [Unknown]

NARRATIVE: CASE EVENT DATE: 2018
